FAERS Safety Report 8575507-6 (Version None)
Quarter: 2012Q3

REPORT INFORMATION
  Report Type: 
  Country: None (occurrence: None)
  Receive Date: 20120807
  Receipt Date: 20120801
  Transmission Date: 20120928
  Serious: Yes (Hospitalization, Other)
  Sender: FDA-Public Use
  Company Number: DE-ELI_LILLY_AND_COMPANY-DE201208000605

PATIENT
  Age: 53 Year
  Sex: Female

DRUGS (5)
  1. FORTEO [Suspect]
     Indication: OSTEOPOROSIS
     Dosage: UNK, QD
     Route: 058
     Dates: start: 20110812, end: 20120201
  2. FORTEO [Suspect]
     Dosage: UNK, QD
     Route: 058
     Dates: start: 20120723
  3. VITAMIN D [Concomitant]
     Dosage: UNK, UNKNOWN
     Route: 065
  4. CORTISONE ACETATE [Concomitant]
     Dosage: UNK, UNKNOWN
     Route: 065
  5. AMLODIPINE BESYLATE [Concomitant]
     Dosage: UNK, UNKNOWN
     Route: 065

REACTIONS (6)
  - FALL [None]
  - STERNAL FRACTURE [None]
  - SYNCOPE [None]
  - WRIST FRACTURE [None]
  - LUMBAR VERTEBRAL FRACTURE [None]
  - RIB FRACTURE [None]
